FAERS Safety Report 4511781-0 (Version None)
Quarter: 2004Q4

REPORT INFORMATION
  Report Type: 
  Country: None (occurrence: None)
  Receive Date: 20041123
  Receipt Date: 20041123
  Transmission Date: 20050328
  Serious: Yes (Other)
  Sender: FDA-Public Use
  Company Number: None

PATIENT
  Age: 81 Year
  Sex: Male
  Weight: 83 kg

DRUGS (8)
  1. TERAZOSIN HCL [Suspect]
  2. NITROGLYCERIN [Concomitant]
  3. RANITIDINE HCL [Concomitant]
  4. FOSINOPRIL NA [Concomitant]
  5. METOPROLOL TARTRATE [Concomitant]
  6. SIMVASTATIN [Concomitant]
  7. FELODIPINE [Concomitant]
  8. FINASTERIDE [Concomitant]

REACTIONS (1)
  - DIZZINESS [None]
